FAERS Safety Report 15962242 (Version 1)
Quarter: 2019Q1

REPORT INFORMATION
  Report Type: Report from Study
  Country: IN (occurrence: IN)
  Receive Date: 20190214
  Receipt Date: 20190214
  Transmission Date: 20190417
  Serious: Yes (Death)
  Sender: FDA-Public Use
  Company Number: IN-ALLERGAN-1905967US

PATIENT
  Age: 87 Year
  Sex: Female

DRUGS (1)
  1. BIMATOPROST 0.03% SOL UD-EYE (10037X) [Suspect]
     Active Substance: BIMATOPROST
     Indication: GLAUCOMA
     Dosage: UNK

REACTIONS (1)
  - Death [Fatal]
